FAERS Safety Report 20390212 (Version 1)
Quarter: 2022Q1

REPORT INFORMATION
  Report Type: Spontaneous
  Country: JP (occurrence: JP)
  Receive Date: 20220128
  Receipt Date: 20220128
  Transmission Date: 20220423
  Serious: Yes (Other)
  Sender: FDA-Public Use
  Company Number: JP-Accord-251199

PATIENT
  Age: 77 Year
  Sex: Female
  Weight: 45.60 kg

DRUGS (37)
  1. GEMCITABINE [Suspect]
     Active Substance: GEMCITABINE
     Indication: Diffuse large B-cell lymphoma
     Dosage: 1Q2W
     Route: 042
     Dates: start: 20211222
  2. OXALIPLATIN [Suspect]
     Active Substance: OXALIPLATIN
     Indication: Diffuse large B-cell lymphoma
     Dosage: 1Q2W
     Route: 042
     Dates: start: 20211222
  3. RITUXIMAB [Suspect]
     Active Substance: RITUXIMAB
     Indication: Diffuse large B-cell lymphoma
     Dosage: 1Q2W
     Route: 042
     Dates: start: 20211221
  4. ACETAMINOPHEN [Concomitant]
     Active Substance: ACETAMINOPHEN
     Dates: start: 20211213
  5. ACTONEL [Concomitant]
     Active Substance: RISEDRONATE SODIUM
     Dates: start: 2011
  6. ALOXI [Concomitant]
     Active Substance: PALONOSETRON HYDROCHLORIDE
     Dates: start: 20211222, end: 20211222
  7. AMLODIPINE [Concomitant]
     Active Substance: AMLODIPINE BESYLATE
     Dates: start: 2001, end: 20211221
  8. BENIDIPINE [Concomitant]
     Active Substance: BENIDIPINE
     Dates: start: 2001, end: 20211221
  9. CYTOTEC [Concomitant]
     Active Substance: MISOPROSTOL
     Dates: start: 20211221, end: 20211221
  10. SULFAMETHOXAZOLE\TRIMETHOPRIM [Concomitant]
     Active Substance: SULFAMETHOXAZOLE\TRIMETHOPRIM
     Dates: start: 20210115
  11. DEXAMETHASONE SODIUM PHOSPHATE [Concomitant]
     Active Substance: DEXAMETHASONE SODIUM PHOSPHATE
     Dates: start: 20211222, end: 20211222
  12. EMEND [Concomitant]
     Active Substance: APREPITANT
     Dates: start: 20211222, end: 20211224
  13. FEBUXOSTAT [Concomitant]
     Active Substance: FEBUXOSTAT
     Dates: start: 20210706
  14. FELBINAC [Concomitant]
     Active Substance: FELBINAC
     Dates: start: 2011
  15. DEXTROSE [Concomitant]
     Active Substance: DEXTROSE
     Dates: start: 20211224, end: 20211224
  16. HYALURONATE SODIUM [Concomitant]
     Active Substance: HYALURONATE SODIUM
     Dates: start: 20211213
  17. LANSOPRAZOLE [Concomitant]
     Active Substance: LANSOPRAZOLE
     Dates: start: 20210105
  18. LOXOPROFEN SODIUM [Concomitant]
     Active Substance: LOXOPROFEN SODIUM
     Dosage: TAPE (INCLUDING POULTICE)
     Dates: start: 2011
  19. LOXOPROFEN [Concomitant]
     Active Substance: LOXOPROFEN
     Dates: start: 20211221, end: 20211221
  20. MAGNESIUM OXIDE [Concomitant]
     Active Substance: MAGNESIUM OXIDE
     Dates: start: 20210110
  21. METHYLCOBALAMIN [Concomitant]
     Active Substance: METHYLCOBALAMIN
     Dates: start: 2011
  22. LENOGRASTIM [Concomitant]
     Active Substance: LENOGRASTIM
     Dates: start: 20211227, end: 20220103
  23. NIPOLAZIN [Concomitant]
     Dates: start: 2011, end: 20211221
  24. OPALMON [Concomitant]
     Active Substance: LIMAPROST
     Dates: start: 2011
  25. RESTAMIN KOWA [Concomitant]
     Dates: start: 20211221, end: 20211221
  26. DEXTROSE\SODIUM CHLORIDE\SODIUM LACTATE [Concomitant]
     Active Substance: DEXTROSE\SODIUM CHLORIDE\SODIUM LACTATE
     Dates: start: 20211225, end: 20211225
  27. SOLDEM 3A [Concomitant]
     Active Substance: CARBOHYDRATES\POTASSIUM CHLORIDE\SODIUM CHLORIDE\SODIUM LACTATE
     Dates: start: 20211228, end: 20211228
  28. URSO [Concomitant]
     Active Substance: URSODIOL
     Dates: start: 2011
  29. CYANOCOBALAMIN\PYRIDOXINE HYDROCHLORIDE\THIAMINE [Concomitant]
     Active Substance: CYANOCOBALAMIN\PYRIDOXINE HYDROCHLORIDE\THIAMINE
     Route: 042
     Dates: start: 20211224, end: 20211224
  30. VOLTAREN [Concomitant]
     Active Substance: DICLOFENAC SODIUM
     Dates: start: 2011
  31. ZOVIRAX [Concomitant]
     Active Substance: ACYCLOVIR
     Dates: start: 20210710
  32. BENIDIPINE HYDROCHLORIDE [Concomitant]
     Active Substance: BENIDIPINE HYDROCHLORIDE
     Dates: start: 20211222
  33. LEVOFLOXACIN [Concomitant]
     Active Substance: LEVOFLOXACIN
     Dates: start: 20211228, end: 20220104
  34. NORVASC [Concomitant]
     Active Substance: AMLODIPINE BESYLATE
     Route: 048
     Dates: start: 20211222
  35. MEQUITAZINE [Concomitant]
     Active Substance: MEQUITAZINE
     Dates: start: 20211222
  36. AMINO ACIDS NOS W/ELECTROLYTES NOS/ [Concomitant]
     Dates: start: 20211230, end: 20211231
  37. SOLDEM 3 [Concomitant]
     Dates: start: 20211224, end: 20211224

REACTIONS (2)
  - Hyponatraemia [Recovered/Resolved]
  - Bile duct stone [Not Recovered/Not Resolved]

NARRATIVE: CASE EVENT DATE: 20211225
